FAERS Safety Report 6765343-5 (Version None)
Quarter: 2010Q2

REPORT INFORMATION
  Report Type: 
  Country: None (occurrence: None)
  Receive Date: 20100608
  Receipt Date: 20100524
  Transmission Date: 20101027
  Serious: Yes (Other)
  Sender: FDA-Public Use
  Company Number: GB-ACCORD-005103

PATIENT
  Age: 55 Year
  Sex: Male
  Weight: 104 kg

DRUGS (3)
  1. SIMVASTATIN [Suspect]
     Dosage: 80.00MG;
     Dates: start: 20030330, end: 20070117
  2. BISOPROLOL [Concomitant]
  3. SPIRONOLACTONE [Concomitant]

REACTIONS (1)
  - MYALGIA [None]
